FAERS Safety Report 5640952-5 (Version None)
Quarter: 2008Q1

REPORT INFORMATION
  Report Type: 
  Country: None (occurrence: None)
  Receive Date: 20080227
  Receipt Date: 20080215
  Transmission Date: 20080703
  Serious: Yes (Hospitalization)
  Sender: FDA-Public Use
  Company Number: JP-ROCHE-548438

PATIENT
  Age: 47 Year
  Sex: Female

DRUGS (12)
  1. ROCEPHIN [Suspect]
     Indication: PNEUMONIA MYCOPLASMAL
     Route: 042
     Dates: start: 20061001, end: 20061001
  2. CIPROFLOXACIN [Suspect]
     Indication: PNEUMONIA MYCOPLASMAL
     Route: 065
     Dates: start: 20061001, end: 20061001
  3. MINOMYCIN [Suspect]
     Indication: PNEUMONIA MYCOPLASMAL
     Route: 065
     Dates: start: 20061001, end: 20061001
  4. BAKTAR [Suspect]
     Indication: PNEUMONIA MYCOPLASMAL
     Route: 048
     Dates: start: 20061001, end: 20061101
  5. BLOPRESS [Suspect]
     Indication: DRUG USE FOR UNKNOWN INDICATION
     Route: 048
     Dates: start: 20061001, end: 20061101
  6. ASPIRIN [Suspect]
     Indication: DRUG USE FOR UNKNOWN INDICATION
     Route: 048
  7. ACETAMINOPHEN [Suspect]
     Indication: DRUG USE FOR UNKNOWN INDICATION
     Route: 048
  8. ZITHROMAX [Concomitant]
     Dates: start: 20061001, end: 20061001
  9. SOLU-MEDROL [Concomitant]
     Dates: start: 20061001, end: 20061101
  10. SOLU-MEDROL [Concomitant]
     Dates: start: 20061001, end: 20061101
  11. PREDNISOLONE [Concomitant]
     Dates: start: 20061101
  12. UNASYN [Concomitant]
     Dates: start: 20061012

REACTIONS (1)
  - TOXIC EPIDERMAL NECROLYSIS [None]
